FAERS Safety Report 13478282 (Version 1)
Quarter: 2017Q2

REPORT INFORMATION
  Report Type: Spontaneous
  Country: US (occurrence: US)
  Receive Date: 20170425
  Receipt Date: 20170425
  Transmission Date: 20170830
  Serious: No
  Sender: FDA-Public Use
  Company Number: US-BAYER-2017-078444

PATIENT
  Sex: Female

DRUGS (1)
  1. GADAVIST [Suspect]
     Active Substance: GADOBUTROL
     Indication: PRODUCT USED FOR UNKNOWN INDICATION
     Dosage: 7 ML, ONCE
     Route: 040
     Dates: start: 20170421, end: 20170421

REACTIONS (1)
  - Urticaria [None]

NARRATIVE: CASE EVENT DATE: 20170421
